FAERS Safety Report 9681676 (Version 4)
Quarter: 2014Q1

REPORT INFORMATION
  Report Type: Spontaneous
  Country: US (occurrence: US)
  Receive Date: 20131111
  Receipt Date: 20140102
  Transmission Date: 20141002
  Serious: Yes (Death, Hospitalization)
  Sender: FDA-Public Use
  Company Number: US-BAYER-2013-111535

PATIENT
  Age: 89 Year
  Sex: Male
  Weight: 63.05 kg

DRUGS (13)
  1. XARELTO [Suspect]
     Indication: DEEP VEIN THROMBOSIS
     Dosage: 20 MG, QD
     Route: 048
     Dates: start: 20130505, end: 20130514
  2. XARELTO [Suspect]
     Indication: CEREBROVASCULAR ACCIDENT PROPHYLAXIS
  3. XARELTO [Suspect]
     Indication: ATRIAL FIBRILLATION
  4. ACETYLSALICYLIC ACID({=100 MG) [Interacting]
     Indication: PRODUCT USED FOR UNKNOWN INDICATION
     Dosage: 81 MG, UNK
     Route: 048
  5. COUMADIN [Interacting]
     Indication: PRODUCT USED FOR UNKNOWN INDICATION
  6. SYMBICORT [Concomitant]
     Dosage: UNK
     Route: 048
     Dates: start: 20130430
  7. VYTORIN [Concomitant]
     Route: 048
  8. TOPROL XL [Concomitant]
     Dosage: 50 MG, QD
     Route: 048
  9. VITAMIN C [Concomitant]
     Route: 048
  10. OXYGEN [Concomitant]
     Dosage: 2 L, UNK
     Route: 045
     Dates: start: 20130110
  11. ALBUTEROL SULFATE [Concomitant]
     Route: 065
     Dates: start: 20120202
  12. NEXIUM [Concomitant]
     Dosage: 40 MG, UNK
     Route: 048
  13. MULTIVITAMINS [Concomitant]
     Route: 048

REACTIONS (10)
  - Pneumonia [Fatal]
  - Pulmonary embolism [Unknown]
  - Atrial fibrillation [Unknown]
  - Haematuria [Not Recovered/Not Resolved]
  - Haemoptysis [Not Recovered/Not Resolved]
  - Occult blood positive [Not Recovered/Not Resolved]
  - Gastrointestinal haemorrhage [Unknown]
  - Cardiac failure congestive [Unknown]
  - Coagulopathy [Recovered/Resolved]
  - Leukocytosis [Unknown]
